FAERS Safety Report 9024324 (Version 1)
Quarter: 2013Q1

REPORT INFORMATION
  Report Type: Spontaneous
  Country: FR (occurrence: FR)
  Receive Date: 20130121
  Receipt Date: 20130121
  Transmission Date: 20140127
  Serious: Yes (Other)
  Sender: FDA-Public Use
  Company Number: PHHY2013FR004536

PATIENT
  Age: 70 Year
  Sex: Female

DRUGS (6)
  1. GLIVEC [Suspect]
     Indication: CHRONIC MYELOID LEUKAEMIA
     Dosage: 400 MG, QD
     Route: 048
     Dates: start: 200405, end: 20071001
  2. GLIVEC [Suspect]
     Dosage: 400 MG, QD
     Route: 048
     Dates: start: 20080207, end: 20110112
  3. GLIVEC [Suspect]
     Dosage: 400 MG, QD
     Route: 048
     Dates: start: 20110616
  4. METFORMIN [Concomitant]
  5. JANUVIA [Concomitant]
  6. NOVONORM [Concomitant]

REACTIONS (1)
  - Actinic keratosis [Not Recovered/Not Resolved]
